FAERS Safety Report 9722375 (Version 1)
Quarter: 2013Q4

REPORT INFORMATION
  Report Type: Report from Study
  Country: JP (occurrence: JP)
  Receive Date: 20131202
  Receipt Date: 20131202
  Transmission Date: 20140711
  Serious: Yes (Life-Threatening)
  Sender: FDA-Public Use
  Company Number: JP-CELGENEUS-087-50794-13115553

PATIENT
  Age: 77 Year
  Sex: Male
  Weight: 56 kg

DRUGS (19)
  1. VIDAZA [Suspect]
     Indication: MYELODYSPLASTIC SYNDROME
     Dosage: 75 MILLIGRAM/SQ. METER
     Route: 058
     Dates: start: 20110808, end: 20110812
  2. VIDAZA [Suspect]
     Dosage: 75 MILLIGRAM/SQ. METER
     Route: 058
     Dates: start: 20111017, end: 20111021
  3. VIDAZA [Suspect]
     Dosage: 75 MILLIGRAM/SQ. METER
     Route: 058
     Dates: start: 20111219, end: 20111226
  4. VIDAZA [Suspect]
     Dosage: 75 MILLIGRAM/SQ. METER
     Route: 058
     Dates: start: 20120116, end: 20120120
  5. VIDAZA [Suspect]
     Dosage: 75 MILLIGRAM/SQ. METER
     Route: 058
     Dates: start: 20120312, end: 20120316
  6. VIDAZA [Suspect]
     Dosage: 75 MILLIGRAM/SQ. METER
     Route: 058
     Dates: start: 20120409, end: 20120413
  7. MAGMITT [Concomitant]
     Indication: PRODUCT USED FOR UNKNOWN INDICATION
     Route: 065
  8. SEROTONE [Concomitant]
     Indication: PRODUCT USED FOR UNKNOWN INDICATION
     Route: 065
     Dates: start: 20110808, end: 20110812
  9. SEROTONE [Concomitant]
     Route: 065
     Dates: start: 20111017, end: 20111021
  10. SEROTONE [Concomitant]
     Route: 065
     Dates: start: 20111219, end: 20111226
  11. SEROTONE [Concomitant]
     Route: 065
     Dates: start: 20120116, end: 20120120
  12. SEROTONE [Concomitant]
     Route: 065
     Dates: start: 20120312, end: 20120316
  13. SEROTONE [Concomitant]
     Route: 065
     Dates: start: 20120409, end: 20120413
  14. ADALAT L [Concomitant]
     Indication: PRODUCT USED FOR UNKNOWN INDICATION
     Route: 065
  15. PURSENNID [Concomitant]
     Indication: PRODUCT USED FOR UNKNOWN INDICATION
     Route: 065
  16. KENALOG [Concomitant]
     Indication: PRODUCT USED FOR UNKNOWN INDICATION
     Route: 065
     Dates: start: 20120111
  17. RINDERON-VG [Concomitant]
     Indication: PRODUCT USED FOR UNKNOWN INDICATION
     Route: 065
     Dates: start: 20120118
  18. LEUPLIN SR [Concomitant]
     Indication: PRODUCT USED FOR UNKNOWN INDICATION
     Route: 065
     Dates: start: 20120201
  19. LEUPLIN SR [Concomitant]
     Route: 065
     Dates: start: 20120502

REACTIONS (1)
  - Neutropenia [Recovered/Resolved]
